FAERS Safety Report 14776672 (Version 1)
Quarter: 2018Q2

REPORT INFORMATION
  Report Type: Spontaneous
  Country: FR (occurrence: FR)
  Receive Date: 20180419
  Receipt Date: 20180419
  Transmission Date: 20180711
  Serious: Yes (Other)
  Sender: FDA-Public Use
  Company Number: FR-MERCK KGAA-2045986

PATIENT
  Age: 55 Year
  Sex: Female

DRUGS (4)
  1. NOVOTHYROX [Suspect]
     Active Substance: LEVOTHYROXINE SODIUM
     Dates: start: 20170914
  2. NOVOTHYROX [Suspect]
     Active Substance: LEVOTHYROXINE SODIUM
     Indication: HYPOTHYROIDISM
  3. NOVOTHYROX [Suspect]
     Active Substance: LEVOTHYROXINE SODIUM
     Dates: start: 201709
  4. NOVOTHYROX [Suspect]
     Active Substance: LEVOTHYROXINE SODIUM
     Dates: start: 20171012, end: 201710

REACTIONS (31)
  - Emotional disorder [None]
  - Gastrointestinal disorder [None]
  - Sensory disturbance [None]
  - Blood thyroid stimulating hormone decreased [None]
  - Feeling of body temperature change [None]
  - Mood swings [None]
  - Loss of personal independence in daily activities [None]
  - Migraine [None]
  - Malaise [Not Recovered/Not Resolved]
  - Stress [None]
  - Back pain [None]
  - Nausea [None]
  - Depression [None]
  - Spinal pain [None]
  - Hyperthyroidism [None]
  - Impaired work ability [None]
  - Fatigue [None]
  - Dizziness [None]
  - Alopecia [None]
  - Sudden onset of sleep [None]
  - Vomiting [None]
  - Blood pressure increased [None]
  - Hypersomnia [None]
  - Headache [None]
  - Hot flush [None]
  - Blood thyroid stimulating hormone increased [None]
  - C-reactive protein increased [None]
  - Vision blurred [None]
  - Thyroxine free decreased [None]
  - Insomnia [None]
  - Muscle spasms [None]

NARRATIVE: CASE EVENT DATE: 2017
